FAERS Safety Report 13004872 (Version 1)
Quarter: 2016Q4

REPORT INFORMATION
  Report Type: Report from Study
  Country: FR (occurrence: FR)
  Receive Date: 20161207
  Receipt Date: 20161207
  Transmission Date: 20170207
  Serious: Yes (Other)
  Sender: FDA-Public Use
  Company Number: FR-ROCHE-1864436

PATIENT
  Age: 80 Year
  Sex: Female

DRUGS (1)
  1. AVASTIN [Suspect]
     Active Substance: BEVACIZUMAB
     Indication: BREAST CANCER METASTATIC
     Route: 065
     Dates: start: 2013, end: 2015

REACTIONS (2)
  - Tooth disorder [Recovered/Resolved]
  - Osteonecrosis of jaw [Recovered/Resolved]
